FAERS Safety Report 9157452 (Version 2)
Quarter: 2014Q2

REPORT INFORMATION
  Report Type: Spontaneous
  Country: US (occurrence: None)
  Receive Date: 20130308
  Receipt Date: 20140418
  Transmission Date: 20141212
  Serious: Yes (Death, Hospitalization)
  Sender: FDA-Public Use
  Company Number: 2013-063

PATIENT
  Age: 55 Year
  Sex: Male

DRUGS (22)
  1. FAZACLO [Suspect]
     Dosage: 100-400 MG, QD, ORAL
     Route: 048
     Dates: start: 20121008, end: 20121227
  2. ALBUTEROL HFA (SALBUTAMOL) [Concomitant]
  3. CARBIDOPA AND LEVODOPA (CARBIDOPA, LEVODOPA) [Concomitant]
  4. CEFTRIAXONE (CEFTRIAXONE SODIUM) [Concomitant]
  5. CHLORHEXIDINE (CHLORHEXIDINE) [Concomitant]
  6. DESMOPRESSIN ACETATE (DESMOPRESSIN ACETATE) [Concomitant]
  7. DOCUSATE SODIUM (DOCUSATE SODIUM) [Concomitant]
  8. FINASTERIDE (FINASTERIDE) [Concomitant]
  9. GABAPENTIN (GABAPENTIN) [Concomitant]
  10. HEPARIN FLUSH (HEPARIN SODIUM) [Concomitant]
  11. HYDROCHLOROTHIAZIDE (HYDROCHLOROTHIAZIDE) [Concomitant]
  12. INSULIN (INSULIN PORCINE) [Concomitant]
  13. IPRATROPIUM BROMIDE (PRATROPIUM BROMIDE) [Concomitant]
  14. LACTULOSE (LACTULOSE) [Concomitant]
  15. METHYLPREDNISOLONE (METHYLPREDNISOLONE) [Concomitant]
  16. MIRTAZAPINE (MIRTAZAPINE) [Concomitant]
  17. PANTOPRAZOLE (PANTOPRAZOLE SODIUM SESQUIHYDRATE) [Concomitant]
  18. QUETIAPINE (QUETIAPINE FUMARATE) [Concomitant]
  19. ROPINIROLE HYDROCHLORIDE (ROPINIROLE HYDROCHLORIDE) [Concomitant]
  20. SENNOSIDE (SENNOSIDE A+B) [Concomitant]
  21. SPIRONOLACTONE (SPIRONOLACTONE) [Concomitant]
  22. VANCOMYCIN HCL (VANCOMYCIN HYDROCHLORIDE) [Concomitant]

REACTIONS (4)
  - Death [None]
  - Endotracheal intubation [None]
  - Mental status changes [None]
  - Pyrexia [None]
